FAERS Safety Report 5056627-X (Version None)
Quarter: 2006Q2

REPORT INFORMATION
  Report Type: 
  Country: None (occurrence: None)
  Receive Date: 20060616
  Receipt Date: 20060425
  Transmission Date: 20061013
  Serious: No
  Sender: FDA-Public Use
  Company Number: 224606

PATIENT
  Age: 71 Year
  Sex: Female

DRUGS (3)
  1. AVASTIN [Suspect]
     Indication: RECTAL CANCER
  2. FLUOROURACIL [Concomitant]
  3. COUMADIN [Concomitant]

REACTIONS (2)
  - DEEP VEIN THROMBOSIS [None]
  - PHLEBITIS SUPERFICIAL [None]
